FAERS Safety Report 7781023-1 (Version None)
Quarter: 2011Q3

REPORT INFORMATION
  Report Type: 
  Country: None (occurrence: None)
  Receive Date: 20110927
  Receipt Date: 20110921
  Transmission Date: 20111222
  Serious: Yes (Death, Life-Threatening, Hospitalization, Other)
  Sender: FDA-Public Use
  Company Number: PHHY2009JP43046

PATIENT
  Sex: Male
  Weight: 60 kg

DRUGS (8)
  1. GLAKAY [Concomitant]
     Indication: MYELODYSPLASTIC SYNDROME
     Dosage: 45 MG, UNK
     Route: 048
     Dates: start: 20071030, end: 20090723
  2. DIFLUCAN [Concomitant]
     Indication: PROPHYLAXIS
  3. AMARYL [Concomitant]
     Indication: TYPE 2 DIABETES MELLITUS
     Dosage: 1 MG, UNK
     Route: 048
     Dates: start: 20080131
  4. DIFLUCAN [Concomitant]
     Indication: TYPE 2 DIABETES MELLITUS
     Dosage: 200 MG, UNK
     Route: 048
     Dates: start: 20071030, end: 20090723
  5. EXJADE [Suspect]
     Indication: IRON OVERLOAD
     Dosage: 1000 MG, DAILY
     Route: 048
     Dates: start: 20090629, end: 20090723
  6. LASIX [Concomitant]
     Indication: TYPE 2 DIABETES MELLITUS
     Dosage: 10 MG, UNK
     Route: 048
     Dates: start: 20080430
  7. ALDACTONE [Concomitant]
     Indication: TYPE 2 DIABETES MELLITUS
     Dosage: 12.5 MG, UNK
     Route: 048
     Dates: start: 20080430
  8. RED BLOOD CELLS, CONCENTRATED [Concomitant]
     Dosage: 2 UNITS (EVERY WEEK)
     Dates: start: 20090601

REACTIONS (3)
  - SEPTIC SHOCK [None]
  - PNEUMONIA [None]
  - WHITE BLOOD CELL COUNT DECREASED [None]
